FAERS Safety Report 5360282-9 (Version None)
Quarter: 2007Q2

REPORT INFORMATION
  Report Type: 
  Country: None (occurrence: None)
  Receive Date: 20070530
  Receipt Date: 20070212
  Transmission Date: 20071010
  Serious: No
  Sender: FDA-Public Use
  Company Number: 2007PV029920

PATIENT
  Age: 63 Year
  Sex: Male
  Weight: 117.028 kg

DRUGS (3)
  1. BYETTA [Suspect]
     Indication: DIABETES MELLITUS NON-INSULIN-DEPENDENT
     Dosage: 5 MCG; BID; SC
     Route: 058
     Dates: start: 20070104, end: 20070116
  2. METFORMIN HCL [Concomitant]
  3. AVANDIA [Concomitant]

REACTIONS (9)
  - CONSTIPATION [None]
  - DIARRHOEA [None]
  - DYSPEPSIA [None]
  - HYPERSENSITIVITY [None]
  - INJECTION SITE BRUISING [None]
  - INJECTION SITE ERYTHEMA [None]
  - NAUSEA [None]
  - OESOPHAGEAL PAIN [None]
  - SENSATION OF FOREIGN BODY [None]
